FAERS Safety Report 11339723 (Version 1)
Quarter: 2015Q3

REPORT INFORMATION
  Report Type: Spontaneous
  Country: US (occurrence: None)
  Receive Date: 20150803
  Receipt Date: 20150803
  Transmission Date: 20151125
  Serious: Yes (Death)
  Sender: FDA-Public Use
  Company Number: None

PATIENT
  Age: 50 Year
  Sex: Female

DRUGS (18)
  1. A-HYDROCORT [Concomitant]
     Active Substance: HYDROCORTISONE SODIUM SUCCINATE
  2. FUROSEMIDE. [Concomitant]
     Active Substance: FUROSEMIDE
  3. DEXAMETHASON [Concomitant]
     Active Substance: DEXAMETHASONE
  4. MULTIVITAMIN [Concomitant]
     Active Substance: VITAMINS
  5. DEXAMETHASON [Concomitant]
     Active Substance: DEXAMETHASONE
  6. XARELTO [Concomitant]
     Active Substance: RIVAROXABAN
  7. LEVOFLOXACIN. [Concomitant]
     Active Substance: LEVOFLOXACIN
  8. GEMERLAC [Concomitant]
  9. ONDANSETRON [Concomitant]
     Active Substance: ONDANSETRON
  10. FURPSE,ODE [Concomitant]
  11. RANITIDINE [Concomitant]
     Active Substance: RANITIDINE\RANITIDINE HYDROCHLORIDE
  12. GABAPENTIN. [Concomitant]
     Active Substance: GABAPENTIN
  13. MORPHINE SUL [Concomitant]
  14. MEKINIST [Suspect]
     Active Substance: TRAMETINIB DIMETHYL SULFOXIDE
     Indication: LUNG NEOPLASM MALIGNANT
     Route: 048
     Dates: start: 20150617, end: 201507
  15. OMEPRAZOLE. [Concomitant]
     Active Substance: OMEPRAZOLE
  16. POT CHLORIDE [Concomitant]
     Active Substance: POTASSIUM CHLORIDE
  17. AZITHROMYCIN [Concomitant]
     Active Substance: AZITHROMYCIN ANHYDROUS
  18. VENTIOLIN [Concomitant]

REACTIONS (1)
  - Death [None]

NARRATIVE: CASE EVENT DATE: 201507
